FAERS Safety Report 10844217 (Version 1)
Quarter: 2015Q1

REPORT INFORMATION
  Report Type: Spontaneous
  Country: US (occurrence: US)
  Receive Date: 20150220
  Receipt Date: 20150220
  Transmission Date: 20150721
  Serious: No
  Sender: FDA-Public Use
  Company Number: US-009507513-1502USA008497

PATIENT
  Sex: Female

DRUGS (2)
  1. BRILINTA [Concomitant]
     Active Substance: TICAGRELOR
  2. ZONTIVITY [Suspect]
     Active Substance: VORAPAXAR SULFATE
     Dosage: 2.08 MG, UNK
     Route: 048

REACTIONS (1)
  - Urticaria [Not Recovered/Not Resolved]
